FAERS Safety Report 21564920 (Version 1)
Quarter: 2022Q4

REPORT INFORMATION
  Report Type: Spontaneous
  Country: CN (occurrence: CN)
  Receive Date: 20221108
  Receipt Date: 20221108
  Transmission Date: 20230113
  Serious: Yes (Other)
  Sender: FDA-Public Use
  Company Number: CN-PFIZER INC-PV202200097524

PATIENT
  Age: 88 Year
  Sex: Male
  Weight: 57 kg

DRUGS (4)
  1. DALTEPARIN SODIUM [Suspect]
     Active Substance: DALTEPARIN SODIUM
     Indication: Cerebral infarction
     Dosage: 5000 IU, 1X/DAY
     Route: 058
     Dates: start: 20220830, end: 20220905
  2. DALTEPARIN SODIUM [Suspect]
     Active Substance: DALTEPARIN SODIUM
     Indication: Thrombophlebitis
     Dosage: 3750 IU, 2X/DAY
     Route: 058
     Dates: start: 20220905, end: 20220907
  3. RIVAROXABAN [Suspect]
     Active Substance: RIVAROXABAN
     Indication: Cerebral infarction
     Dosage: 10 MG, 1X/DAY
     Route: 048
     Dates: start: 20220827
  4. ASPIRIN [Suspect]
     Active Substance: ASPIRIN
     Indication: Cerebral infarction
     Dosage: 100 MG, 1X/DAY
     Route: 048
     Dates: start: 20220907

REACTIONS (3)
  - Haematuria [Unknown]
  - Haemoglobin decreased [Unknown]
  - Off label use [Unknown]

NARRATIVE: CASE EVENT DATE: 20220830
